FAERS Safety Report 20346743 (Version 6)
Quarter: 2024Q2

REPORT INFORMATION
  Report Type: Spontaneous
  Country: PT (occurrence: PT)
  Receive Date: 20220118
  Receipt Date: 20240418
  Transmission Date: 20240715
  Serious: Yes (Other)
  Sender: FDA-Public Use
  Company Number: PT-SA-2022SA001495

PATIENT
  Age: 65 Year
  Sex: Female

DRUGS (8)
  1. DOCETAXEL [Suspect]
     Active Substance: DOCETAXEL\DOCETAXEL ANHYDROUS
     Indication: Metastases to lung
     Dosage: CYCLE
     Route: 065
  2. DOCETAXEL [Suspect]
     Active Substance: DOCETAXEL\DOCETAXEL ANHYDROUS
     Indication: Leiomyosarcoma
     Dosage: UNK
     Route: 065
  3. DOCETAXEL [Suspect]
     Active Substance: DOCETAXEL\DOCETAXEL ANHYDROUS
     Indication: Leiomyosarcoma metastatic
  4. GEMCITABINE [Suspect]
     Active Substance: GEMCITABINE
     Indication: Uterine leiomyosarcoma
     Dosage: CYCLE
     Route: 065
  5. GEMCITABINE [Suspect]
     Active Substance: GEMCITABINE
     Indication: Metastases to lung
     Dosage: UNK
     Route: 065
  6. GEMCITABINE [Suspect]
     Active Substance: GEMCITABINE
     Indication: Leiomyosarcoma metastatic
  7. DOXORUBICIN [Suspect]
     Active Substance: DOXORUBICIN
     Indication: Leiomyosarcoma
     Dosage: UNK
     Route: 065
  8. TRABECTEDIN [Concomitant]
     Active Substance: TRABECTEDIN
     Indication: Leiomyosarcoma
     Dosage: UNK
     Route: 065

REACTIONS (6)
  - Hepatic failure [Unknown]
  - Renal impairment [Unknown]
  - Pancytopenia [Unknown]
  - Renal failure [Unknown]
  - Hepatic function abnormal [Unknown]
  - Off label use [Unknown]
